FAERS Safety Report 7529950-4 (Version None)
Quarter: 2011Q2

REPORT INFORMATION
  Report Type: 
  Country: None (occurrence: None)
  Receive Date: 20110606
  Receipt Date: 20110606
  Transmission Date: 20111010
  Serious: Yes (Other)
  Sender: FDA-Public Use
  Company Number: None

PATIENT
  Age: 66 Year
  Sex: Female
  Weight: 73.9363 kg

DRUGS (1)
  1. PREDNISONE [Suspect]
     Indication: OPTIC NEURITIS
     Dosage: 5MG QD PO
     Route: 048
     Dates: start: 20110411, end: 20110415

REACTIONS (2)
  - DRUG INEFFECTIVE [None]
  - PRODUCT SUBSTITUTION ISSUE [None]
